FAERS Safety Report 10768661 (Version 1)
Quarter: 2015Q1

REPORT INFORMATION
  Report Type: Other
  Country: US (occurrence: US)
  Receive Date: 20150206
  Receipt Date: 20150206
  Transmission Date: 20150721
  Serious: No
  Sender: FDA-Public Use
  Company Number: US-ACORDA-ACO_104469_2014

PATIENT
  Sex: Female

DRUGS (1)
  1. AMPYRA [Suspect]
     Active Substance: DALFAMPRIDINE
     Indication: MULTIPLE SCLEROSIS
     Dosage: 1 EVERY MORNING AND EVERY AFTERNOON
     Route: 048
     Dates: start: 20100708

REACTIONS (3)
  - Hypoaesthesia [Unknown]
  - Influenza [Unknown]
  - Dizziness [Unknown]
